FAERS Safety Report 4701837-1 (Version None)
Quarter: 2005Q2

REPORT INFORMATION
  Report Type: 
  Country: None (occurrence: None)
  Receive Date: 20050627
  Receipt Date: 20050613
  Transmission Date: 20051028
  Serious: Yes (Hospitalization)
  Sender: FDA-Public Use
  Company Number: 2005-05-1944

PATIENT
  Age: 49 Year
  Sex: Male
  Weight: 69.8539 kg

DRUGS (7)
  1. PEG-INTRON [Suspect]
     Indication: HEPATITIS
     Dosage: SUBCUTANEOUS
     Route: 058
     Dates: start: 20041227
  2. PEG-INTRON [Suspect]
  3. RIBAVIRIN [Suspect]
     Indication: HEPATITIS C
     Dosage: 800 MG QD
     Dates: start: 20041227
  4. RIBAVIRIN [Suspect]
  5. CELEXA [Concomitant]
  6. IBUPROFEN TABLETS [Concomitant]
  7. VANCOCIN CAPSULES [Concomitant]

REACTIONS (19)
  - ABDOMINAL PAIN [None]
  - ABDOMINAL TENDERNESS [None]
  - ATONIC URINARY BLADDER [None]
  - BOWEL SOUNDS ABNORMAL [None]
  - CHILLS [None]
  - CONSTIPATION [None]
  - DIARRHOEA [None]
  - FATIGUE [None]
  - HYPOTONIC URINARY BLADDER [None]
  - NAUSEA [None]
  - PAIN [None]
  - PYREXIA [None]
  - RESPIRATORY RATE INCREASED [None]
  - SMALL INTESTINAL OBSTRUCTION [None]
  - URINARY RETENTION [None]
  - URINARY TRACT INFECTION [None]
  - URINARY TRACT OBSTRUCTION [None]
  - VOMITING [None]
  - WHITE BLOOD CELL COUNT DECREASED [None]
